FAERS Safety Report 21812371 (Version 4)
Quarter: 2023Q1

REPORT INFORMATION
  Report Type: Spontaneous
  Country: US (occurrence: US)
  Receive Date: 20230103
  Receipt Date: 20230321
  Transmission Date: 20230418
  Serious: Yes (Hospitalization)
  Sender: FDA-Public Use
  Company Number: US-PARI RESPIRATORY EQUIPMENT, INC.-2022PAR00081

PATIENT
  Sex: Female
  Weight: 10.204 kg

DRUGS (8)
  1. KITABIS PAK [Suspect]
     Active Substance: TOBRAMYCIN
     Indication: Pseudomonas infection
     Dosage: 300 MG VIA NEBULIZER, 2X/DAY FOR 28 DAYS (ONE MONTH TREATMENT)
     Dates: start: 2021, end: 2021
  2. KITABIS PAK [Suspect]
     Active Substance: TOBRAMYCIN
     Indication: Cystic fibrosis
     Dosage: 300 MG VIA NEBULIZER, 2X/DAY FOR 28 DAYS (ONE MONTH TREATMENT)
     Dates: start: 202211, end: 20221205
  3. KITABIS PAK [Suspect]
     Active Substance: TOBRAMYCIN
     Indication: Illness
  4. PULMOZYME [Concomitant]
     Active Substance: DORNASE ALFA
  5. ALBUTEROL SULFATE [Concomitant]
     Active Substance: ALBUTEROL SULFATE
  6. UNSPECIFIED PANCREATIC SUPPLEMENTATION [Concomitant]
  7. VITAMINS NOS [Concomitant]
     Active Substance: VITAMINS
  8. VITAMIN K [Concomitant]
     Active Substance: PHYTONADIONE

REACTIONS (9)
  - Respiratory syncytial virus infection [Recovered/Resolved]
  - COVID-19 [Recovered/Resolved]
  - Parainfluenzae virus infection [Recovered/Resolved]
  - Lower respiratory tract infection bacterial [Recovered/Resolved]
  - Lower respiratory tract infection viral [Recovered/Resolved]
  - Infective pulmonary exacerbation of cystic fibrosis [Recovering/Resolving]
  - Hypoxia [Recovered/Resolved]
  - Hospitalisation [Unknown]
  - Off label use [Recovered/Resolved]

NARRATIVE: CASE EVENT DATE: 20210101
